FAERS Safety Report 11569188 (Version 1)
Quarter: 2015Q3

REPORT INFORMATION
  Report Type: Spontaneous
  Country: US (occurrence: US)
  Receive Date: 20150929
  Receipt Date: 20150929
  Transmission Date: 20151125
  Serious: Yes (Disabling)
  Sender: FDA-Public Use
  Company Number: US-009507513-1509USA013987

PATIENT
  Sex: Female

DRUGS (2)
  1. AMARYL [Concomitant]
     Active Substance: GLIMEPIRIDE
     Dosage: 1 G, QD
  2. JANUVIA [Suspect]
     Active Substance: SITAGLIPTIN PHOSPHATE
     Dosage: 100 MG, ONCE DAILY
     Route: 048
     Dates: end: 20150518

REACTIONS (4)
  - Pain in extremity [Unknown]
  - Peripheral swelling [Unknown]
  - Arthralgia [Unknown]
  - Joint swelling [Unknown]
